FAERS Safety Report 4722609-8 (Version None)
Quarter: 2005Q3

REPORT INFORMATION
  Report Type: 
  Country: None (occurrence: None)
  Receive Date: 20050720
  Receipt Date: 20050714
  Transmission Date: 20060218
  Serious: Yes (Other)
  Sender: FDA-Public Use
  Company Number: 2005US-00584

PATIENT
  Age: 17 Year
  Sex: Female

DRUGS (1)
  1. ISOTRETINOIN [Suspect]
     Dosage: ORAL
     Route: 048
     Dates: start: 20040729, end: 20041022

REACTIONS (3)
  - DYSMENORRHOEA [None]
  - MENSTRUATION IRREGULAR [None]
  - OVARIAN CYST RUPTURED [None]
